FAERS Safety Report 6024272-5 (Version None)
Quarter: 2008Q4

REPORT INFORMATION
  Report Type: 
  Country: None (occurrence: None)
  Receive Date: 20081229
  Receipt Date: 20081212
  Transmission Date: 20090506
  Serious: Yes (Hospitalization)
  Sender: FDA-Public Use
  Company Number: 2008AL012476

PATIENT
  Age: 81 Year
  Sex: Female

DRUGS (3)
  1. TRAMADOL HCL [Suspect]
     Indication: PAIN
     Dosage: 50 MG; QID
     Dates: start: 20071108
  2. FEVERALL [Suspect]
     Indication: PAIN
     Dosage: 1 G; QID
     Route: 054
     Dates: start: 20071108
  3. MAREVAN [Concomitant]

REACTIONS (3)
  - DRUG INTERACTION [None]
  - HAEMATOMA [None]
  - INTERNATIONAL NORMALISED RATIO INCREASED [None]
